FAERS Safety Report 15180929 (Version 3)
Quarter: 2018Q4

REPORT INFORMATION
  Report Type: Report from Study
  Country: FI (occurrence: FI)
  Receive Date: 20180723
  Receipt Date: 20181015
  Transmission Date: 20190204
  Serious: Yes (Death, Hospitalization, Other)
  Sender: FDA-Public Use
  Company Number: FI-MYLANLABS-2018M1055463

PATIENT
  Age: 38 Year
  Sex: Female

DRUGS (8)
  1. LEPONEX [Suspect]
     Active Substance: CLOZAPINE
     Dosage: 375 MG, QD
  2. LEPONEX [Suspect]
     Active Substance: CLOZAPINE
     Dosage: UNK, QD
     Dates: start: 20180711
  3. VENLAFAXINE [Concomitant]
     Active Substance: VENLAFAXINE HYDROCHLORIDE
     Indication: PRODUCT USED FOR UNKNOWN INDICATION
     Dosage: 2 DF, QD
  4. OPAMOX [Concomitant]
     Active Substance: OXAZEPAM
     Indication: PRODUCT USED FOR UNKNOWN INDICATION
     Dosage: 15 MG, UNK
  5. OLANZAPINE. [Suspect]
     Active Substance: OLANZAPINE
     Indication: PRODUCT USED FOR UNKNOWN INDICATION
     Dosage: UNK
     Dates: start: 201807, end: 201807
  6. PERATSIN [Concomitant]
     Active Substance: PERPHENAZINE
     Indication: PRODUCT USED FOR UNKNOWN INDICATION
     Dosage: 2 DF, BID
  7. LEPONEX [Suspect]
     Active Substance: CLOZAPINE
     Indication: SCHIZOAFFECTIVE DISORDER
     Dosage: UNK, QD
  8. LEPONEX [Suspect]
     Active Substance: CLOZAPINE
     Dosage: 75 MG, QD
     Dates: start: 201807, end: 201807

REACTIONS (12)
  - Cardiac failure acute [Fatal]
  - Insomnia [Unknown]
  - Premature delivery [Unknown]
  - Off label use [Recovered/Resolved]
  - Maternal exposure during pregnancy [Recovered/Resolved]
  - Cardiac function disturbance postoperative [Fatal]
  - Mental impairment [Unknown]
  - Drug effect incomplete [Unknown]
  - Anxiety [Unknown]
  - Cardiogenic shock [Fatal]
  - Suicidal behaviour [Unknown]
  - Congestive cardiomyopathy [Fatal]

NARRATIVE: CASE EVENT DATE: 201807
